FAERS Safety Report 8539217-3 (Version None)
Quarter: 2012Q3

REPORT INFORMATION
  Report Type: 
  Country: None (occurrence: None)
  Receive Date: 20120726
  Receipt Date: 20120724
  Transmission Date: 20120928
  Serious: Yes (Other)
  Sender: FDA-Public Use
  Company Number: GB-PFIZER INC-2012178447

PATIENT
  Sex: Male

DRUGS (1)
  1. VARENICLINE TARTRATE [Suspect]
     Dosage: UNK

REACTIONS (5)
  - NON-CARDIAC CHEST PAIN [None]
  - DEPRESSED MOOD [None]
  - SINUS CONGESTION [None]
  - AGITATION [None]
  - DYSPNOEA [None]
